FAERS Safety Report 18525767 (Version 6)
Quarter: 2020Q4

REPORT INFORMATION
  Report Type: Report from Study
  Country: None (occurrence: DE)
  Receive Date: 20201119
  Receipt Date: 20201218
  Transmission Date: 20210114
  Serious: Yes (Hospitalization)
  Sender: FDA-Public Use
  Company Number: DE-ABBVIE-20K-062-3655154-00

PATIENT
  Sex: Female

DRUGS (5)
  1. DUODOPA [Suspect]
     Active Substance: CARBIDOPA\LEVODOPA
     Indication: PARKINSON^S DISEASE
     Dosage: MD 7 ML, CRD 3.7 ML/H, CRN 3 ML/H, ED 3 ML
     Route: 050
     Dates: start: 20201009, end: 202011
  2. LEVODOPA [Concomitant]
     Active Substance: LEVODOPA
     Indication: PRODUCT USED FOR UNKNOWN INDICATION
  3. ZOLPIDEM [Concomitant]
     Active Substance: ZOLPIDEM TARTRATE
     Indication: INSOMNIA
     Dosage: AS NEEDED
     Route: 048
     Dates: start: 20201120
  4. QUETIAPIN [Concomitant]
     Active Substance: QUETIAPINE
     Indication: PSYCHOTIC DISORDER DUE TO A GENERAL MEDICAL CONDITION
     Dosage: AS NEEDED
     Route: 048
     Dates: start: 20180320
  5. DUODOPA [Suspect]
     Active Substance: CARBIDOPA\LEVODOPA
     Dosage: CONTINUOUS 5 ML/H
     Route: 050
     Dates: start: 202011, end: 202012

REACTIONS (7)
  - Psychotic disorder [Unknown]
  - Impulse-control disorder [Recovering/Resolving]
  - Mental disorder [Not Recovered/Not Resolved]
  - Intentional device use issue [Unknown]
  - Balance disorder [Unknown]
  - Device physical property issue [Recovering/Resolving]
  - Agitation [Recovering/Resolving]

NARRATIVE: CASE EVENT DATE: 2020
